FAERS Safety Report 4388199-7 (Version None)
Quarter: 2004Q2

REPORT INFORMATION
  Report Type: 
  Country: None (occurrence: None)
  Receive Date: 20040624
  Receipt Date: 20040609
  Transmission Date: 20050107
  Serious: Yes (Life-Threatening)
  Sender: FDA-Public Use
  Company Number: 601316

PATIENT
  Age: 60 Year
  Sex: Female
  Weight: 80 kg

DRUGS (8)
  1. GAMMAGARD S/D [Suspect]
     Indication: IDIOPATHIC THROMBOCYTOPENIC PURPURA
     Dosage: GM/KG; PRN; INTRAVENOUS
     Route: 042
     Dates: start: 20040526, end: 20040526
  2. TEGELINE [Concomitant]
  3. HYDROCORTISONE [Concomitant]
  4. POLARAMINE [Concomitant]
  5. CORTANCYL [Concomitant]
  6. OMEPRAZOLE [Concomitant]
  7. DIFFU K [Concomitant]
  8. ATACAND [Concomitant]

REACTIONS (7)
  - BLOOD PRESSURE INCREASED [None]
  - CHEST DISCOMFORT [None]
  - CYANOSIS [None]
  - DYSPNOEA [None]
  - MALAISE [None]
  - OXYGEN SATURATION DECREASED [None]
  - TACHYCARDIA [None]
